FAERS Safety Report 9511874 (Version 2)
Quarter: 2013Q4

REPORT INFORMATION
  Report Type: Spontaneous
  Country: JP (occurrence: None)
  Receive Date: 20130906
  Receipt Date: 20131023
  Transmission Date: 20140711
  Serious: Yes (Other)
  Sender: FDA-Public Use
  Company Number: SYM-2013-10266

PATIENT
  Age: 80 Year
  Sex: Male

DRUGS (3)
  1. FLUOROURACIL (FLUOROURACIL) (FLUOROURACIL) [Suspect]
     Indication: COLON CANCER RECURRENT
     Dosage: 320 MG/M2 ONCE INTRAVENOUS BOLUS
     Route: 040
     Dates: start: 200811
  2. FOLINIC ACID [Concomitant]
  3. IRINOTECAN (IRINOTECAN) (IRINOTECAN) [Concomitant]

REACTIONS (1)
  - Hyperammonaemic encephalopathy [None]
